FAERS Safety Report 11585231 (Version 2)
Quarter: 2015Q4

REPORT INFORMATION
  Report Type: Report from Study
  Country: US (occurrence: US)
  Receive Date: 20151001
  Receipt Date: 20151106
  Transmission Date: 20160304
  Serious: Yes (Life-Threatening, Hospitalization)
  Sender: FDA-Public Use
  Company Number: US-PACIRA PHARMACEUTICALS, INC.-2015DEPUS00662

PATIENT
  Age: 35 Year
  Sex: Female
  Weight: 84.81 kg

DRUGS (7)
  1. DAUNORUBICIN [Suspect]
     Active Substance: DAUNORUBICIN
     Indication: B-CELL TYPE ACUTE LEUKAEMIA
     Dosage: 120.3 MG, DAY1 OF COURSE 1A
     Route: 042
     Dates: start: 20150904, end: 20150906
  2. PREDNISONE. [Suspect]
     Active Substance: PREDNISONE
     Indication: B-CELL TYPE ACUTE LEUKAEMIA
     Dosage: 120 MG, DAYS 1-28 OF COURSE 1A
     Route: 048
     Dates: start: 20150904
  3. VINCRISTINE [Suspect]
     Active Substance: VINCRISTINE
     Indication: B-CELL TYPE ACUTE LEUKAEMIA
     Dosage: 2.807 MG, DAY1 + DAY8 OF COURSE 1A
     Route: 042
     Dates: start: 20150904
  4. VINCRISTINE [Suspect]
     Active Substance: VINCRISTINE
     Dosage: 2.807 MG, DAY1 + DAY8 OF COURSE 1A
     Route: 042
     Dates: start: 20150911
  5. DEPOCYT [Suspect]
     Active Substance: CYTARABINE
     Indication: B-CELL TYPE ACUTE LEUKAEMIA
     Dosage: 25 MG, DAY 5 OF COURSE 1A
     Route: 037
     Dates: start: 20150908
  6. CYCLOPHOSPHAMIDE. [Suspect]
     Active Substance: CYCLOPHOSPHAMIDE
     Indication: B-CELL TYPE ACUTE LEUKAEMIA
     Dosage: 1690 MG, DAY 1 AND DAY15 OF COURSE 1A
     Route: 042
     Dates: start: 20150904
  7. RITUXIMAB [Suspect]
     Active Substance: RITUXIMAB
     Indication: B-CELL TYPE ACUTE LEUKAEMIA
     Dosage: 752 MG, DAY 1 OF COURSE 1A
     Route: 042
     Dates: start: 20150904

REACTIONS (3)
  - Headache [Recovered/Resolved]
  - Pancytopenia [Recovered/Resolved]
  - Sepsis [Recovered/Resolved]

NARRATIVE: CASE EVENT DATE: 20150908
